FAERS Safety Report 5329464-6 (Version None)
Quarter: 2007Q2

REPORT INFORMATION
  Report Type: 
  Country: None (occurrence: None)
  Receive Date: 20070221
  Receipt Date: 20060907
  Transmission Date: 20071010
  Serious: Yes (Hospitalization)
  Sender: FDA-Public Use
  Company Number: BDI-008613

PATIENT
  Sex: Female

DRUGS (3)
  1. ISOVUE-300 [Suspect]
     Indication: INTERVERTEBRAL DISC PROTRUSION
     Dosage: 15 ML ONCE IT
     Route: 037
     Dates: start: 20060901, end: 20060901
  2. ISOVUE-300 [Suspect]
     Indication: SPINAL MYELOGRAM
     Dosage: 15 ML ONCE IT
     Route: 037
     Dates: start: 20060901, end: 20060901
  3. ZOLOFT [Concomitant]

REACTIONS (1)
  - CONVULSION [None]
